FAERS Safety Report 15934708 (Version 1)
Quarter: 2019Q1

REPORT INFORMATION
  Report Type: Spontaneous
  Country: IT (occurrence: IT)
  Receive Date: 20190207
  Receipt Date: 20190207
  Transmission Date: 20190417
  Serious: Yes (Other)
  Sender: FDA-Public Use
  Company Number: IT-TEVA-2019-IT-1008187

PATIENT
  Age: 77 Year

DRUGS (11)
  1. FUROSEMIDE. [Concomitant]
     Active Substance: FUROSEMIDE
     Route: 042
  2. CARDIOASPIRIN [Concomitant]
     Active Substance: ASPIRIN
     Route: 048
  3. DOPAMINA [Concomitant]
     Route: 042
  4. ALLOPURINOLO [Concomitant]
     Active Substance: ALLOPURINOL
     Route: 048
  5. ENOXAPARIN [Concomitant]
     Active Substance: ENOXAPARIN
  6. CARVEDILOLO ACCORD [Concomitant]
     Route: 048
  7. PANTOPRAZOLE [Concomitant]
     Active Substance: PANTOPRAZOLE
  8. VORICONAZOLE. [Suspect]
     Active Substance: VORICONAZOLE
     Dosage: 400 MILLIGRAM DAILY;
     Route: 048
     Dates: start: 20190118, end: 20190119
  9. DIBASE [Concomitant]
     Active Substance: CHOLECALCIFEROL
  10. VORICONAZOLE. [Suspect]
     Active Substance: VORICONAZOLE
     Indication: BRONCHOPULMONARY ASPERGILLOSIS
     Dosage: 400 MILLIGRAM DAILY;
     Route: 042
     Dates: start: 20190114, end: 20190117
  11. SANDIMMUN 25 MG CAPSULE MOLLI [Concomitant]

REACTIONS (2)
  - Agitation [Not Recovered/Not Resolved]
  - Disorientation [Not Recovered/Not Resolved]

NARRATIVE: CASE EVENT DATE: 20190118
